FAERS Safety Report 16146215 (Version 2)
Quarter: 2019Q3

REPORT INFORMATION
  Report Type: Spontaneous
  Country: US (occurrence: US)
  Receive Date: 20190402
  Receipt Date: 20190813
  Transmission Date: 20191004
  Serious: No
  Sender: FDA-Public Use
  Company Number: US-PFIZER INC-2019128421

PATIENT
  Age: 66 Year
  Sex: Female
  Weight: 81 kg

DRUGS (23)
  1. AMBIEN [Concomitant]
     Active Substance: ZOLPIDEM TARTRATE
     Indication: SLEEP DISORDER
     Dosage: 5 MG, AS NEEDED (TAKE 1 TAB (5 MG TOTAL) BY MOUTH AT BEDTIME AS NEEDED FOR SLEEP.)
     Route: 048
  2. TYLENOL [Concomitant]
     Active Substance: ACETAMINOPHEN
     Dosage: UNK, AS NEEDED (TAKE 500-1000 MG BY MOUTH EVERY 6 HOURS AS NEEDED)
     Route: 048
  3. ECOTRIN [Concomitant]
     Active Substance: ASPIRIN
     Dosage: 81 MG, DAILY (TAKE 81 MG BY MOUTH DAILY)
     Route: 048
  4. GLUCOTROL [Concomitant]
     Active Substance: GLIPIZIDE
     Dosage: 5 MG, DAILY (TAKE 5 MG BY MOUTH DAILY)
     Route: 048
  5. SYNTHROID [Concomitant]
     Active Substance: LEVOTHYROXINE SODIUM
     Dosage: 75 UG, 1X/DAY (TAKE 1 TABLET (75 MCG) BY MOUTH ONCE DAILY)
     Route: 048
  6. COZAAR [Concomitant]
     Active Substance: LOSARTAN POTASSIUM
     Dosage: 25 MG, 1X/DAY (TAKE 1 TABLET (25 MG) BY MOUTH ONCE DAILY)
     Route: 048
  7. MEDROL [Concomitant]
     Active Substance: METHYLPREDNISOLONE
     Dosage: UNK (TAKE 1-6 TABLETS (4 -24 MG) BY MOUTH AS DIRECTED. TAKE PER PACKAGE INSTRUCTIONS)
     Route: 048
  8. PREDNISONE. [Concomitant]
     Active Substance: PREDNISONE
     Indication: GOUT
     Dosage: UNK (TAKE 1 TAB (5 MG TOTAL) BY MOUTH AT BEDTIME AS NEEDED)
     Route: 048
  9. SENNA PLUS [DOCUSATE SODIUM;SENNOSIDE A+B] [Concomitant]
     Dosage: UNK, AS NEEDED (TAKE 1-2 TABLETS BY MOUTH AS NEEDED)
     Route: 048
  10. LYRICA [Suspect]
     Active Substance: PREGABALIN
     Dosage: 100 MG, DAILY [2 CAPSULES DAILY]
  11. LYRICA [Suspect]
     Active Substance: PREGABALIN
     Dosage: 50 MG, AS NEEDED (1-2 TIMES A DAY)
  12. VITAMIN D3 [Concomitant]
     Active Substance: CHOLECALCIFEROL
     Dosage: 1000 IU, DAILY (TAKE 1000 UNITS BY MOUTH DAILY)
     Route: 048
  13. DELTASONE [Concomitant]
     Active Substance: PREDNISONE
     Indication: GOUT
     Dosage: UNK, DAILY (TAKE BY MOUTH DAILY AS DIRECTED. 4 TABS X 4-DAY, 3 TABS X 4-DAY, 2 TABS X 4 DAY)
     Route: 048
  14. SENOKOT-S [Concomitant]
     Active Substance: DOCUSATE SODIUM\SENNOSIDES
     Dosage: UNK, AS NEEDED (TAKE 1 (50 MG) BY MOUTH AS DIRECTED. 1-2 TIMES A DAY PRN)
     Route: 048
  15. LYRICA [Suspect]
     Active Substance: PREGABALIN
     Indication: POST HERPETIC NEURALGIA
     Dosage: 50 MG, 2X/DAY
     Dates: start: 2014
  16. LYRICA [Suspect]
     Active Substance: PREGABALIN
     Dosage: 50 MG, 2X/DAY
     Dates: end: 2014
  17. LYRICA [Suspect]
     Active Substance: PREGABALIN
     Dosage: 6 DF, WEEKLY
  18. NORVASC [Concomitant]
     Active Substance: AMLODIPINE BESYLATE
     Dosage: 10 MG, 1X/DAY (TAKE 1 TABLET (10 MG) BY MOUTH ONCE DAILY)
     Route: 048
  19. ZOCOR [Concomitant]
     Active Substance: SIMVASTATIN
     Dosage: 20 MG, 1X/DAY (TAKE 1 TABLET (20 MG) BY MOUTH ONCE DAILY)
     Route: 048
  20. LYRICA [Suspect]
     Active Substance: PREGABALIN
     Dosage: 50 MG, 3X/DAY
     Route: 048
     Dates: start: 2014
  21. CYMBALTA [Concomitant]
     Active Substance: DULOXETINE HYDROCHLORIDE
     Dosage: 60 MG, 1X/DAY (TAKE 1 CAPSULE (60 MG) BY MOUTH ONCE DAILY)
     Route: 048
  22. RETIN-A [Concomitant]
     Active Substance: TRETINOIN
     Dosage: UNK, 1X/DAY (APPLY A PEA SIZE AMOUNT TO THE AFFECTED AREA(S) ON A DRY FACE AT BEDTIME)
     Route: 061
  23. AMBIEN [Concomitant]
     Active Substance: ZOLPIDEM TARTRATE
     Dosage: UNK (ONCE EVERY 4 MONTHS)

REACTIONS (4)
  - Drug ineffective [Unknown]
  - Intentional product misuse [Unknown]
  - Anxiety [Unknown]
  - Body height decreased [Not Recovered/Not Resolved]

NARRATIVE: CASE EVENT DATE: 2014
